FAERS Safety Report 5509654-X (Version None)
Quarter: 2007Q4

REPORT INFORMATION
  Report Type: 
  Country: None (occurrence: None)
  Receive Date: 20071108
  Receipt Date: 20071030
  Transmission Date: 20080405
  Serious: Yes (Other)
  Sender: FDA-Public Use
  Company Number: PHBS2007JP18305

PATIENT

DRUGS (1)
  1. RITALIN [Suspect]
     Indication: DEPRESSION
     Route: 048

REACTIONS (1)
  - BEDRIDDEN [None]
